FAERS Safety Report 8004021-1 (Version None)
Quarter: 2011Q4

REPORT INFORMATION
  Report Type: 
  Country: None (occurrence: None)
  Receive Date: 20111222
  Receipt Date: 20111215
  Transmission Date: 20120403
  Serious: Yes (Disabling, Other)
  Sender: FDA-Public Use
  Company Number: AU-MERCK-1110USA01691

PATIENT
  Age: 67 Year
  Sex: Male
  Weight: 54 kg

DRUGS (6)
  1. LERCANIDIPINE HYDROCHLORIDE [Concomitant]
     Indication: HYPERTENSION
     Route: 065
     Dates: start: 20101001
  2. LAMIVUDINE [Concomitant]
     Indication: HEPATITIS B
     Route: 065
     Dates: start: 20100501, end: 20110701
  3. JANUVIA [Suspect]
     Indication: DIABETES MELLITUS
     Route: 048
     Dates: start: 20100415
  4. LAMIVUDINE [Concomitant]
     Route: 065
     Dates: start: 19960101, end: 20100501
  5. GLICLAZIDE [Concomitant]
     Indication: DIABETES MELLITUS
     Route: 065
  6. ADEFOVIR DIPIVOXIL [Suspect]
     Indication: LIVER DISORDER
     Route: 048
     Dates: start: 20080815, end: 20100715

REACTIONS (5)
  - RENAL TUBULAR DISORDER [None]
  - HYPERTENSION [None]
  - NASAL CONGESTION [None]
  - COUGH [None]
  - WEIGHT INCREASED [None]
